FAERS Safety Report 6210737-X (Version None)
Quarter: 2009Q2

REPORT INFORMATION
  Report Type: 
  Country: None (occurrence: None)
  Receive Date: 20090527
  Receipt Date: 20090514
  Transmission Date: 20091009
  Serious: Yes (Congenital Anomaly)
  Sender: FDA-Public Use
  Company Number: 235431K09USA

PATIENT

DRUGS (1)
  1. REBIF [Suspect]
     Indication: MULTIPLE SCLEROSIS
     Dosage: TRANSPLACENTAL
     Route: 064
     Dates: end: 20071213

REACTIONS (3)
  - ABORTION SPONTANEOUS [None]
  - CYTOGENETIC ABNORMALITY [None]
  - MATERNAL DRUGS AFFECTING FOETUS [None]
